FAERS Safety Report 25112557 (Version 1)
Quarter: 2025Q1

REPORT INFORMATION
  Report Type: Spontaneous
  Country: IN (occurrence: IN)
  Receive Date: 20250324
  Receipt Date: 20250324
  Transmission Date: 20250409
  Serious: Yes (Death, Other)
  Sender: GLENMARK
  Company Number: IN-GLENMARK PHARMACEUTICALS-2025GMK098644

PATIENT
  Age: 56 Year
  Sex: Male

DRUGS (2)
  1. ABIRATERONE ACETATE [Suspect]
     Active Substance: ABIRATERONE ACETATE
     Indication: Hormone-dependent prostate cancer
     Route: 065
     Dates: start: 20240502
  2. LEUPROLIDE [Suspect]
     Active Substance: LEUPROLIDE
     Indication: Hormone-dependent prostate cancer
     Route: 065
     Dates: start: 20240502

REACTIONS (1)
  - Prostate cancer [Fatal]
